FAERS Safety Report 25685430 (Version 1)
Quarter: 2025Q3

REPORT INFORMATION
  Report Type: Spontaneous
  Country: EU (occurrence: EU)
  Receive Date: 20250815
  Receipt Date: 20250815
  Transmission Date: 20251021
  Serious: Yes (Life-Threatening, Hospitalization)
  Sender: PFIZER
  Company Number: None

PATIENT
  Age: 74 Year
  Sex: Female

DRUGS (1)
  1. RITUXIMAB [Suspect]
     Active Substance: RITUXIMAB
     Indication: Rheumatoid arthritis
     Route: 042
     Dates: start: 2009, end: 20250504

REACTIONS (1)
  - Immune thrombocytopenia [Recovered/Resolved]

NARRATIVE: CASE EVENT DATE: 20250522
